FAERS Safety Report 4976430-6 (Version None)
Quarter: 2006Q2

REPORT INFORMATION
  Report Type: 
  Country: None (occurrence: None)
  Receive Date: 20060412
  Receipt Date: 20060330
  Transmission Date: 20061013
  Serious: Yes (Life-Threatening, Disabling, Other)
  Sender: FDA-Public Use
  Company Number: MIN-00012

PATIENT
  Age: 15 Year
  Sex: Male

DRUGS (3)
  1. MINOCYCLINE HCL [Suspect]
     Indication: ACNE
     Dosage: 100 MG QD ORALLY
     Route: 048
  2. IBUPROFEN [Concomitant]
  3. NAPROXEN [Concomitant]

REACTIONS (18)
  - AUTOIMMUNE HEPATITIS [None]
  - COAGULATION FACTOR IX LEVEL DECREASED [None]
  - COAGULATION FACTOR VII LEVEL DECREASED [None]
  - COAGULATION FACTOR VIII LEVEL DECREASED [None]
  - COAGULOPATHY [None]
  - ECCHYMOSIS [None]
  - GILBERT'S SYNDROME [None]
  - HEPATIC CIRRHOSIS [None]
  - HEPATOMEGALY [None]
  - HYPERTENSION [None]
  - INTERNATIONAL NORMALISED RATIO INCREASED [None]
  - LUPUS-LIKE SYNDROME [None]
  - PETECHIAE [None]
  - PORTAL HYPERTENSION [None]
  - PROTHROMBIN LEVEL DECREASED [None]
  - RENAL ARTERY STENOSIS [None]
  - SPLENOMEGALY [None]
  - THROMBOCYTOPENIA [None]
